FAERS Safety Report 9907198 (Version 6)
Quarter: 2014Q3

REPORT INFORMATION
  Report Type: Spontaneous
  Country: US (occurrence: US)
  Receive Date: 20140218
  Receipt Date: 20140922
  Transmission Date: 20150326
  Serious: Yes (Other)
  Sender: FDA-Public Use
  Company Number: US-GE HEALTHCARE MEDICAL DIAGNOSTICS-OSCN-PR-1402S-0024

PATIENT
  Sex: Male

DRUGS (7)
  1. OMNISCAN [Suspect]
     Active Substance: GADODIAMIDE
     Indication: DIAGNOSTIC PROCEDURE
     Route: 065
     Dates: start: 20051107, end: 20051107
  2. COUMADIN [Concomitant]
     Active Substance: WARFARIN SODIUM
     Dates: start: 2004
  3. PREDISONE [Concomitant]
     Active Substance: PREDNISONE
     Dates: start: 2003
  4. PREDISONE [Concomitant]
     Active Substance: PREDNISONE
     Dates: start: 2006
  5. PLAVIX [Concomitant]
     Active Substance: CLOPIDOGREL BISULFATE
     Dates: start: 2006
  6. OMNISCAN [Suspect]
     Active Substance: GADODIAMIDE
     Indication: PRODUCT USED FOR UNKNOWN INDICATION
     Route: 065
     Dates: start: 20050506, end: 20050506
  7. OMNISCAN [Suspect]
     Active Substance: GADODIAMIDE
     Route: 065
     Dates: start: 20060719, end: 20060719

REACTIONS (3)
  - Nephrogenic systemic fibrosis [Not Recovered/Not Resolved]
  - Emotional distress [Unknown]
  - Mental disorder [Unknown]

NARRATIVE: CASE EVENT DATE: 2007
